FAERS Safety Report 18245119 (Version 2)
Quarter: 2020Q3

REPORT INFORMATION
  Report Type: Report from Study
  Country: US (occurrence: US)
  Receive Date: 20200908
  Receipt Date: 20200924
  Transmission Date: 20201103
  Serious: Yes (Hospitalization)
  Sender: FDA-Public Use
  Company Number: US-PFIZER INC-2020344996

PATIENT
  Age: 69 Year
  Sex: Female
  Weight: 59 kg

DRUGS (18)
  1. VITAMIN B12 [Concomitant]
     Active Substance: CYANOCOBALAMIN
     Indication: VITAMIN SUPPLEMENTATION
     Dosage: 2500 MCG, 1 IN 1 D
     Route: 048
     Dates: start: 20190901
  2. GABAPENTIN. [Concomitant]
     Active Substance: GABAPENTIN
     Indication: NEUROPATHY PERIPHERAL
     Dosage: 900 MG, 1 IN 1 D
     Route: 048
     Dates: start: 20180518
  3. CLARINEX [Concomitant]
     Active Substance: DESLORATADINE
     Indication: SEASONAL ALLERGY
     Dosage: 5 MG, 1X/DAY
     Route: 048
     Dates: start: 20120710
  4. EMLA [Concomitant]
     Active Substance: LIDOCAINE\PRILOCAINE
     Indication: SEASONAL ALLERGY
     Dosage: 2.5 %, AS REQUIRED
     Route: 061
     Dates: start: 20200416
  5. IRINOTECAN HCL [Suspect]
     Active Substance: IRINOTECAN HYDROCHLORIDE
     Indication: NEOPLASM
     Dosage: 180 MG/M2, 1 IN 2 WK, DAYS 1 AND 15 OF A 28?DAY CYCLE
     Route: 042
     Dates: start: 20200810, end: 20200810
  6. 5?FU [Suspect]
     Active Substance: FLUOROURACIL
     Indication: NEOPLASM
     Dosage: 400 MG/M2, 1 IN 2 WK, BOLUS: DAYS 1 AND 15 OF A 28?DAY CYCLE (INTRAVENOUS BOLUS)
     Route: 042
     Dates: start: 20200810
  7. IPRATROPIUM [Concomitant]
     Active Substance: IPRATROPIUM
     Indication: SEASONAL ALLERGY
     Dosage: 42 MCG, AS REQUIRED
     Route: 045
     Dates: start: 20191216
  8. PROTONIX [Concomitant]
     Active Substance: PANTOPRAZOLE SODIUM
     Indication: GASTROOESOPHAGEAL REFLUX DISEASE
     Dosage: 40 MG, 1 IN 1 D
     Route: 048
     Dates: start: 20191003
  9. SYNTHROID [Concomitant]
     Active Substance: LEVOTHYROXINE SODIUM
     Indication: HYPOTHYROIDISM
     Dosage: 25 MCG, 1 IN 1 D
     Route: 048
     Dates: start: 20180901
  10. PROBIOTIC [BIFIDOBACTERIUM BIFIDUM;BIFIDOBACTERIUM LACTIS;BIFIDOBACTER [Concomitant]
     Indication: SUPPLEMENTATION THERAPY
     Dosage: UNK, 1 IN 1 D
     Route: 048
     Dates: start: 20180701
  11. AMLODIPINE [Concomitant]
     Active Substance: AMLODIPINE BESYLATE
     Indication: HYPERTENSION
     Dosage: 5 MG, 1 IN 1 D
     Route: 048
     Dates: start: 20190901
  12. 5?FU [Suspect]
     Active Substance: FLUOROURACIL
     Dosage: 2400 MG/M2, 1 IN 2 WK, DAYS 1 AND 15 OF A 28?DAY CYCLE
     Route: 042
     Dates: start: 20200810
  13. LEUCOVORIN. [Suspect]
     Active Substance: LEUCOVORIN
     Indication: NEOPLASM
     Dosage: 400 MG/M2, 1 IN 2 WK, DAYS 1 AND 15 OF A 28?DAY CYCLE
     Route: 042
     Dates: start: 20200810
  14. IRINOTECAN HCL [Suspect]
     Active Substance: IRINOTECAN HYDROCHLORIDE
     Dosage: 150 MG/M2, 1 IN 2 WK, DAYS 1 AND 15 OF A 28?DAY CYCLE
     Route: 042
     Dates: start: 20200825
  15. ABBV?621 [Suspect]
     Active Substance: EFTOZANERMIN ALFA
     Indication: NEOPLASM
     Dosage: 3.75 MG/M2, 1 IN 2 WK, DAYS 1 AND 15 OF A 28?DAY CYCLE
     Route: 042
     Dates: start: 20200810
  16. SIMVASTATIN. [Concomitant]
     Active Substance: SIMVASTATIN
     Indication: HYPERLIPIDAEMIA
     Dosage: 20 MG, 1 IN 1 D
     Route: 048
     Dates: start: 20160701
  17. CENTRUM JR [MINERALS NOS;VITAMINS NOS] [Concomitant]
     Indication: VITAMIN SUPPLEMENTATION
     Dosage: 1 TABLET, 1 IN 1 D
     Route: 048
     Dates: start: 20200901
  18. FLONASE [Concomitant]
     Active Substance: FLUTICASONE PROPIONATE
     Indication: SEASONAL ALLERGY
     Dosage: 50 MCG, 1 IN 1 D
     Route: 048
     Dates: start: 20200710

REACTIONS (1)
  - Arthralgia [Recovered/Resolved]

NARRATIVE: CASE EVENT DATE: 20200812
